FAERS Safety Report 5449384-6 (Version None)
Quarter: 2007Q3

REPORT INFORMATION
  Report Type: 
  Country: None (occurrence: None)
  Receive Date: 20070907
  Receipt Date: 20070824
  Transmission Date: 20080115
  Serious: Yes (Death, Other)
  Sender: FDA-Public Use
  Company Number: 2007-02259

PATIENT
  Age: 70 Year
  Sex: Male
  Weight: 80 kg

DRUGS (1)
  1. VELCADE [Suspect]
     Dosage: 1.3 MG/M2
     Dates: start: 20070417, end: 20070427

REACTIONS (6)
  - DISEASE PROGRESSION [None]
  - HAEMORRHAGE [None]
  - MULTIPLE MYELOMA [None]
  - POST PROCEDURAL PNEUMONIA [None]
  - SUBDURAL HAEMATOMA [None]
  - THROMBOCYTOPENIA [None]
